FAERS Safety Report 17187544 (Version 1)
Quarter: 2019Q4

REPORT INFORMATION
  Report Type: Report from Study
  Country: None (occurrence: CA)
  Receive Date: 20191220
  Receipt Date: 20191220
  Transmission Date: 20200122
  Serious: Yes (Other)
  Sender: FDA-Public Use
  Company Number: CA-ABBVIE-19K-028-3198879-00

PATIENT
  Age: 28 Year
  Sex: Female

DRUGS (1)
  1. HUMIRA [Suspect]
     Active Substance: ADALIMUMAB
     Indication: CROHN^S DISEASE
     Route: 058
     Dates: start: 20191213, end: 20191213

REACTIONS (8)
  - Hypoacusis [Unknown]
  - Abdominal distension [Recovered/Resolved]
  - Time perception altered [Unknown]
  - Gastric disorder [Recovered/Resolved]
  - Disorientation [Recovered/Resolved]
  - Mass [Recovered/Resolved]
  - Neurogenic shock [Unknown]
  - Hypophagia [Unknown]

NARRATIVE: CASE EVENT DATE: 20191213
